FAERS Safety Report 4933991-0 (Version None)
Quarter: 2006Q1

REPORT INFORMATION
  Report Type: 
  Country: None (occurrence: None)
  Receive Date: 20060303
  Receipt Date: 20060221
  Transmission Date: 20060701
  Serious: Yes (Other)
  Sender: FDA-Public Use
  Company Number: 2006020076

PATIENT
  Age: 64 Year
  Sex: Female
  Weight: 73 kg

DRUGS (10)
  1. CABERGOLINE [Suspect]
     Indication: PARKINSON'S DISEASE
     Dosage: 8 MG (4 MG, 2 IN 1 D), ORAL
     Route: 048
  2. AMANTADINE HCL [Suspect]
     Indication: PARKINSON'S DISEASE
     Dosage: 200 MG (100 MG, 2 IN 1 D), ORAL
     Route: 048
  3. LEVOTHYROXINE SODIUM [Concomitant]
  4. PRESOMEN COMPOSITUM (ESTROGENS CONJUGATED) [Concomitant]
  5. LISINOPRIL [Concomitant]
  6. DIOVAN HCT [Concomitant]
  7. BISOPROLOL (BISOPROLOL) [Concomitant]
  8. NITRENDIPINE (NITRENDIPINE) [Concomitant]
  9. SIMVASTATIN [Concomitant]
  10. DICLOFENAC SODIUM [Concomitant]

REACTIONS (5)
  - AORTIC VALVE INCOMPETENCE [None]
  - HYPERTENSION [None]
  - MITRAL VALVE INCOMPETENCE [None]
  - PULMONARY VALVE INCOMPETENCE [None]
  - TRICUSPID VALVE INCOMPETENCE [None]
